FAERS Safety Report 13583534 (Version 2)
Quarter: 2017Q4

REPORT INFORMATION
  Report Type: Spontaneous
  Country: US (occurrence: US)
  Receive Date: 20170526
  Receipt Date: 20171024
  Transmission Date: 20180320
  Serious: No
  Sender: FDA-Public Use
  Company Number: US-ASTRAZENECA-2017SE55475

PATIENT
  Age: 894 Month
  Sex: Male
  Weight: 61.2 kg

DRUGS (3)
  1. SYMBICORT [Suspect]
     Active Substance: BUDESONIDE\FORMOTEROL FUMARATE DIHYDRATE
     Indication: CHRONIC OBSTRUCTIVE PULMONARY DISEASE
     Dosage: TWO PUFFS , TWO TIMES DAILY
     Route: 055
     Dates: start: 20170406
  2. PRILOSEC [Suspect]
     Active Substance: OMEPRAZOLE MAGNESIUM
     Indication: GASTROOESOPHAGEAL REFLUX DISEASE
     Dosage: 20 MG,EVERY 3RD OR 4TH DAY
     Route: 048
  3. LOSARTAN POTASSIUM. [Concomitant]
     Active Substance: LOSARTAN POTASSIUM
     Indication: HYPERTENSION
     Route: 048

REACTIONS (8)
  - Vocal cord disorder [Unknown]
  - Product use issue [Unknown]
  - Dysphonia [Not Recovered/Not Resolved]
  - Off label use [Unknown]
  - Candida infection [Not Recovered/Not Resolved]
  - Chest discomfort [Unknown]
  - Secretion discharge [Not Recovered/Not Resolved]
  - Malaise [Unknown]

NARRATIVE: CASE EVENT DATE: 201705
